FAERS Safety Report 24614411 (Version 1)
Quarter: 2024Q4

REPORT INFORMATION
  Report Type: Spontaneous
  Country: IT (occurrence: IT)
  Receive Date: 20241113
  Receipt Date: 20241113
  Transmission Date: 20250115
  Serious: Yes (Other)
  Sender: SK LIFE SCIENCE
  Company Number: None

PATIENT

DRUGS (1)
  1. XCOPRI [Suspect]
     Active Substance: CENOBAMATE
     Indication: Epilepsy
     Dosage: 150MG/DAY AT H.22 (150 MG,1 IN 1 D)
     Route: 048
     Dates: start: 20240720

REACTIONS (5)
  - Seizure [Unknown]
  - Cluster headache [Recovering/Resolving]
  - Nystagmus [Recovering/Resolving]
  - Irritability [Not Recovered/Not Resolved]
  - Balance disorder [Unknown]

NARRATIVE: CASE EVENT DATE: 20240710
